FAERS Safety Report 24697654 (Version 2)
Quarter: 2024Q4

REPORT INFORMATION
  Report Type: Spontaneous
  Country: TW (occurrence: TW)
  Receive Date: 20241204
  Receipt Date: 20241211
  Transmission Date: 20250114
  Serious: Yes (Hospitalization)
  Sender: TEVA
  Company Number: TW-TEVA-VS-3269837

PATIENT
  Age: 67 Year
  Sex: Male

DRUGS (8)
  1. QUETIAPINE [Interacting]
     Active Substance: QUETIAPINE
     Indication: Agitation
     Route: 065
  2. QUETIAPINE [Interacting]
     Active Substance: QUETIAPINE
     Indication: Agitation
     Dosage: DOSE INCREASED
     Route: 065
  3. LORAZEPAM [Concomitant]
     Active Substance: LORAZEPAM
     Indication: Prophylaxis against alcoholic withdrawal syndrome
     Route: 065
  4. PAROXETINE [Interacting]
     Active Substance: PAROXETINE
     Indication: Depressed mood
     Route: 065
  5. PAROXETINE [Interacting]
     Active Substance: PAROXETINE
     Indication: Depressed mood
     Dosage: DOSE INCREASED
     Route: 065
  6. RISPERIDONE [Interacting]
     Active Substance: RISPERIDONE
     Indication: Agitation
     Dosage: GRADUALLY DOSE INCREASED TO 2MG DAILY
     Route: 065
  7. RISPERIDONE [Interacting]
     Active Substance: RISPERIDONE
     Indication: Agitation
     Route: 065
  8. NALTREXONE [Concomitant]
     Active Substance: NALTREXONE
     Indication: Alcohol use disorder
     Route: 065

REACTIONS (3)
  - Serotonin syndrome [Recovering/Resolving]
  - Drug ineffective [Unknown]
  - Drug interaction [Unknown]
